FAERS Safety Report 15697206 (Version 4)
Quarter: 2019Q1

REPORT INFORMATION
  Report Type: Spontaneous
  Country: US (occurrence: US)
  Receive Date: 20181206
  Receipt Date: 20190131
  Transmission Date: 20190417
  Serious: No
  Sender: FDA-Public Use
  Company Number: US-AMGEN-USASP2018172646

PATIENT
  Age: 62 Year
  Sex: Female
  Weight: 52.15 kg

DRUGS (14)
  1. IRON [Concomitant]
     Active Substance: IRON
  2. FISH OIL W/OMEGA-3 FATTY ACIDS [Concomitant]
     Active Substance: FISH OIL\OMEGA-3 FATTY ACIDS
     Dosage: 2 G, QD
     Route: 048
  3. ISOMETHEPTENE MUCATE, CAFFEINE AND ACETAMINOP [Concomitant]
     Dosage: 1 TABLET EVERY 8 HOURS (AS NEEDED)
     Route: 048
  4. PREVACID [Concomitant]
     Active Substance: LANSOPRAZOLE
     Dosage: 30 MG, QD (BEFORE BREAKFAST )
     Route: 048
  5. PROLIA [Suspect]
     Active Substance: DENOSUMAB
     Indication: OSTEOPOROSIS POSTMENOPAUSAL
     Dosage: 60 MG, Q6MO
     Route: 058
     Dates: start: 20180718
  6. CALCIUM+VITAMIN D3 [Concomitant]
     Active Substance: CALCIUM\CHOLECALCIFEROL
     Dosage: 1,000 MG (2,500MG)-800 UNIT, QD
     Route: 048
  7. FERROUS SULFATE. [Concomitant]
     Active Substance: FERROUS SULFATE
     Dosage: 325 MG, QD
     Route: 048
  8. VITAMIN D [Concomitant]
     Active Substance: CHOLECALCIFEROL
     Dosage: 800 UNIT, QD
  9. ESTRACE [Concomitant]
     Active Substance: ESTRADIOL
     Dosage: 0.5 G, 2 TIMES/WK
     Route: 067
  10. THERAGRAN [Concomitant]
     Active Substance: VITAMINS
     Dosage: UNK, QD
     Route: 048
  11. TDAP [Concomitant]
     Active Substance: TETANUS TOXOID, REDUCED DIPHTHERIA TOXOID AND ACELLULAR PERTUSSIS VACCINE ADSORBED, TDAP
  12. RESTASIS [Concomitant]
     Active Substance: CYCLOSPORINE
     Dosage: 1 DROP TO EYE, AS NECESSARY
     Route: 047
  13. FLONASE [Concomitant]
     Active Substance: FLUTICASONE PROPIONATE
     Dosage: 50 MUG, QD
     Route: 045
  14. MAGNESIUM [Concomitant]
     Active Substance: MAGNESIUM
     Dosage: 250 MG, BID
     Route: 048

REACTIONS (12)
  - Macule [Unknown]
  - Red blood cell count decreased [Unknown]
  - White blood cell count decreased [Unknown]
  - Dermatitis [Unknown]
  - Blister [Unknown]
  - Insomnia [Unknown]
  - Influenza [Unknown]
  - Pain in extremity [Unknown]
  - Haemoglobin decreased [Unknown]
  - Rash [Recovered/Resolved]
  - Depression [Unknown]
  - Blood calcium decreased [Unknown]

NARRATIVE: CASE EVENT DATE: 2018
